FAERS Safety Report 4594042-3 (Version None)
Quarter: 2005Q1

REPORT INFORMATION
  Report Type: 
  Country: None (occurrence: None)
  Receive Date: 20050218
  Receipt Date: 20050210
  Transmission Date: 20050727
  Serious: Yes (Hospitalization, Other)
  Sender: FDA-Public Use
  Company Number: HQWYE212010FEB05

PATIENT
  Age: 17 Year
  Sex: Male

DRUGS (4)
  1. EUPANTOL (PANTOPRAZOLE, TABLET, DELAYED RELEASE) [Suspect]
     Indication: ABDOMINAL PAIN UPPER
     Dosage: ^SOMETIME(S) 0 DF^, ORAL
     Route: 048
     Dates: start: 20041102, end: 20041105
  2. EUPANTOL (PANTOPRAZOLE, TABLET, DELAYED RELEASE) [Suspect]
     Indication: DYSPEPSIA
     Dosage: ^SOMETIME(S) 0 DF^, ORAL
     Route: 048
     Dates: start: 20041102, end: 20041105
  3. EUPANTOL (PANTOPRAZOLE, TABLET, DELAYED RELEASE) [Suspect]
     Indication: GASTRITIS VIRAL
     Dosage: ^SOMETIME(S) 0 DF^, ORAL
     Route: 048
     Dates: start: 20041102, end: 20041105
  4. EUPANTOL (PANTOPRAZOLE, TABLET, DELAYED RELEASE) [Suspect]
     Indication: NAUSEA
     Dosage: ^SOMETIME(S) 0 DF^, ORAL
     Route: 048
     Dates: start: 20041102, end: 20041105

REACTIONS (10)
  - ABDOMINAL PAIN UPPER [None]
  - ANOREXIA [None]
  - BACK PAIN [None]
  - DRUG INEFFECTIVE FOR UNAPPROVED INDICATION [None]
  - HAEMATURIA [None]
  - HYPERURICAEMIA [None]
  - NAUSEA [None]
  - NEPHRITIS INTERSTITIAL [None]
  - RENAL FAILURE ACUTE [None]
  - VOMITING [None]
